FAERS Safety Report 19055683 (Version 4)
Quarter: 2022Q2

REPORT INFORMATION
  Report Type: Report from Study
  Country: CN (occurrence: None)
  Receive Date: 20210324
  Receipt Date: 20220606
  Transmission Date: 20220720
  Serious: Yes (Hospitalization)
  Sender: FDA-Public Use
  Company Number: 2021A024592

PATIENT
  Age: 20744 Day
  Sex: Male

DRUGS (49)
  1. DURVALUMAB [Suspect]
     Active Substance: DURVALUMAB
     Indication: Transitional cell carcinoma
     Route: 042
     Dates: start: 20210120, end: 20210120
  2. TREMELIMUMAB [Suspect]
     Active Substance: TREMELIMUMAB
     Indication: Transitional cell carcinoma
     Route: 042
     Dates: start: 20210120, end: 20210120
  3. CISPLATIN [Suspect]
     Active Substance: CISPLATIN
     Indication: Transitional cell carcinoma
     Route: 042
     Dates: start: 20210120, end: 20210120
  4. CISPLATIN [Suspect]
     Active Substance: CISPLATIN
     Indication: Transitional cell carcinoma
     Route: 042
     Dates: start: 20210315, end: 20210316
  5. GEMCITABINE [Suspect]
     Active Substance: GEMCITABINE
     Indication: Transitional cell carcinoma
     Dosage: 957.4 MG/M2 1000 MG/M2 ON DAYS 1 AND 8 OF EVERY 3 WEEK CYCLE FOR 6 CYCLES
     Route: 042
     Dates: start: 20210120, end: 20210120
  6. GEMCITABINE [Suspect]
     Active Substance: GEMCITABINE
     Indication: Transitional cell carcinoma
     Dosage: 972.9 MG/M2 1000 MG/M2 ON DAYS 1 AND 8 OF EVERY 3 WEEK CYCLE FOR 6 CYCLES
     Route: 042
     Dates: start: 20210127, end: 20210127
  7. GEMCITABINE [Suspect]
     Active Substance: GEMCITABINE
     Indication: Transitional cell carcinoma
     Dosage: 952.4 MG/M2 1000 MG/M2 ON DAYS 1 AND 8 OF EVERY 3 WEEK CYCLE FOR 6 CYCLES
     Route: 042
     Dates: start: 20210315, end: 20210315
  8. GEMCITABINE [Suspect]
     Active Substance: GEMCITABINE
     Indication: Transitional cell carcinoma
     Dosage: 957.4 MG/M2 1000 MG/M2 ON DAYS 1 AND 8 OF EVERY 3 WEEK CYCLE FOR 6 CYCLES
     Route: 042
     Dates: start: 20210322, end: 20210322
  9. LIDOCAINE HYDROCHLORIDE [Concomitant]
     Active Substance: LIDOCAINE HYDROCHLORIDE
     Indication: Anaesthesia
     Route: 030
     Dates: start: 20210118, end: 20210119
  10. 25% MAGNESIUM SULFATE INJECTION [Concomitant]
     Indication: Eclampsia
     Route: 042
     Dates: start: 20210118, end: 20210119
  11. AMIFOSTINE FOR INJECTION [Concomitant]
     Indication: Chemotherapy
     Route: 042
     Dates: start: 20210120, end: 20210121
  12. COMPOUND AMYLIN BARBITAL INJECTION [Concomitant]
     Indication: Urinary tract infection
     Route: 030
     Dates: start: 20210128, end: 20210129
  13. CHAI HU INJECTION [Concomitant]
     Indication: Urinary tract infection
     Route: 030
     Dates: start: 20210128, end: 20210129
  14. PEGYLATION RECOMBINANT HUMAN GRANULOCYTE COLONY STIMULATING FACTOR ... [Concomitant]
     Indication: Leukopenia
     Dosage: 3.0MG ONCE/SINGLE ADMINISTRATION
     Route: 058
     Dates: start: 20210128, end: 20210128
  15. RECOMBINANT HUMAN GRANULOCYTE COLONY STIMULATING FACTOR INJECTION [Concomitant]
     Indication: Leukopenia
     Dosage: 150.0UG/INHAL ONCE/SINGLE ADMINISTRATION
     Route: 058
     Dates: start: 20210126, end: 20210126
  16. RECOMBINANT HUMAN GRANULOCYTE COLONY STIMULATING FACTOR INJECTION [Concomitant]
     Indication: White blood cell count
     Dosage: 150.0UG/INHAL ONCE/SINGLE ADMINISTRATION
     Route: 058
     Dates: start: 20210126, end: 20210126
  17. RECOMBINANT HUMAN GRANULOCYTE COLONY STIMULATING FACTOR INJECTION [Concomitant]
     Indication: White blood cell count decreased
     Dosage: 150.0UG/INHAL ONCE/SINGLE ADMINISTRATION
     Route: 058
     Dates: start: 20210126, end: 20210126
  18. RECOMBINANT HUMAN THROMBOPOIETIN INJECTION [Concomitant]
     Indication: Thrombocytopenia
     Dosage: 15000.00 U DAILY
     Route: 058
     Dates: start: 20210128, end: 20210202
  19. CEFOPERAZONE SODIUM\SULBACTAM SODIUM [Concomitant]
     Active Substance: CEFOPERAZONE SODIUM\SULBACTAM SODIUM
     Indication: Infection
     Dosage: 3.0G ONCE/SINGLE ADMINISTRATION
     Route: 042
     Dates: start: 20210128, end: 20210128
  20. CEFOPERAZONE SODIUM\SULBACTAM SODIUM [Concomitant]
     Active Substance: CEFOPERAZONE SODIUM\SULBACTAM SODIUM
     Indication: Anti-infective therapy
     Dosage: 3.0G ONCE/SINGLE ADMINISTRATION
     Route: 042
     Dates: start: 20210128, end: 20210128
  21. AMINOPHENAZONE\ANTIPYRINE\BARBITAL [Concomitant]
     Active Substance: AMINOPHENAZONE\ANTIPYRINE\BARBITAL
     Indication: Pyrexia
     Dosage: 2.0ML ONCE/SINGLE ADMINISTRATION
     Route: 030
     Dates: start: 20210126, end: 20210126
  22. CONCENTRATED SODIUM CHLORIDE INJECTION [Concomitant]
     Indication: Electrolyte imbalance
     Route: 042
     Dates: start: 20210128, end: 20210131
  23. POTASSIUM CHLORIDE [Concomitant]
     Active Substance: POTASSIUM CHLORIDE
     Indication: Electrolyte imbalance
     Route: 042
     Dates: start: 20210128, end: 20210131
  24. POTASSIUM CHLORIDE [Concomitant]
     Active Substance: POTASSIUM CHLORIDE
     Indication: Electrolyte imbalance
     Route: 048
     Dates: start: 20210128, end: 20210203
  25. ALBUMIN HUMAN [Concomitant]
     Active Substance: ALBUMIN HUMAN
     Indication: Hypoalbuminaemia
     Dosage: 10.0G ONCE/SINGLE ADMINISTRATION
     Route: 042
     Dates: start: 20210128, end: 20210128
  26. MANNITOL INJECTION [Concomitant]
     Indication: Sodium retention
     Dosage: 125.0ML ONCE/SINGLE ADMINISTRATION
     Route: 042
     Dates: start: 20210120, end: 20210120
  27. TORSAEMIDE FOR INJECTION [Concomitant]
     Indication: Sodium retention
     Dosage: 20.0MG ONCE/SINGLE ADMINISTRATION
     Route: 042
     Dates: start: 20210120, end: 20210120
  28. FU FANG KU SHEN INJECTION [Concomitant]
     Indication: Cancer pain
     Route: 042
     Dates: start: 20210120, end: 20210124
  29. PANTOPRAZOLE SODIUM [Concomitant]
     Active Substance: PANTOPRAZOLE SODIUM
     Indication: Gastric ulcer
     Dosage: 80.0MG ONCE/SINGLE ADMINISTRATION
     Route: 042
     Dates: start: 20210120, end: 20210120
  30. PANTOPRAZOLE SODIUM [Concomitant]
     Active Substance: PANTOPRAZOLE SODIUM
     Indication: Gastric ulcer
     Dosage: 80.0MG ONCE/SINGLE ADMINISTRATION
     Route: 042
     Dates: start: 20210127, end: 20210127
  31. CALCIUM GLUCONATE\DEXTROSE\MAGNESIUM CHLORIDE\POTASSIUM CHLORIDE\SODIU [Concomitant]
     Active Substance: CALCIUM GLUCONATE\DEXTROSE\MAGNESIUM CHLORIDE\POTASSIUM CHLORIDE\SODIUM ACETATE\SODIUM CHLORIDE\TRIS
     Indication: Electrolyte imbalance
     Dosage: 500.0ML ONCE/SINGLE ADMINISTRATION
     Route: 042
     Dates: start: 20210120, end: 20210120
  32. CALCIUM GLUCONATE\DEXTROSE\MAGNESIUM CHLORIDE\POTASSIUM CHLORIDE\SODIU [Concomitant]
     Active Substance: CALCIUM GLUCONATE\DEXTROSE\MAGNESIUM CHLORIDE\POTASSIUM CHLORIDE\SODIUM ACETATE\SODIUM CHLORIDE\TRIS
     Indication: Electrolyte imbalance
     Dosage: 500.0ML ONCE/SINGLE ADMINISTRATION
     Route: 042
     Dates: start: 20210121, end: 20210121
  33. CARBOHYDRATE AND ELECTROLYTE INJECTION [Concomitant]
     Indication: Electrolyte imbalance
     Route: 042
     Dates: start: 20210120, end: 20210121
  34. CARBOHYDRATE AND ELECTROLYTE INJECTION [Concomitant]
     Indication: Electrolyte imbalance
     Route: 042
     Dates: start: 20210122, end: 20210122
  35. SODIUM ACETATE RINGER^S INJECTION [Concomitant]
     Indication: Electrolyte imbalance
     Route: 042
     Dates: start: 20210120, end: 20210123
  36. SODIUM ACETATE RINGER^S INJECTION [Concomitant]
     Indication: Electrolyte imbalance
     Route: 042
     Dates: start: 20210127, end: 20210127
  37. DOLASETRON MESYLATE INJECTION [Concomitant]
     Indication: Vomiting
     Dosage: 12.5MG ONCE/SINGLE ADMINISTRATION
     Route: 042
     Dates: start: 20210121, end: 20210121
  38. DOLASETRON MESYLATE INJECTION [Concomitant]
     Indication: Vomiting
     Dosage: 12.5MG ONCE/SINGLE ADMINISTRATION
     Route: 042
     Dates: start: 20210127, end: 20210127
  39. DOLASETRON MESYLATE INJECTION [Concomitant]
     Indication: Vomiting
     Dosage: 12.5MG ONCE/SINGLE ADMINISTRATION
     Route: 042
     Dates: start: 20210120, end: 20210120
  40. HEPARIN SODIUM [Concomitant]
     Active Substance: HEPARIN SODIUM
     Indication: Thrombosis
     Dosage: 10.0ML ONCE/SINGLE ADMINISTRATION
     Route: 042
     Dates: start: 20210121, end: 20210121
  41. LOW-MOLECULAR-WEIGHT HEPARIN CALCIUM FOR INJECTION [Concomitant]
     Indication: Thrombosis
     Route: 058
     Dates: start: 20210121, end: 20210128
  42. FOSFOMYCIN TROMETAMOL GRANULES [Concomitant]
     Indication: Urinary tract infection
     Route: 048
     Dates: start: 20210126, end: 20210127
  43. PALONOSETRON HYDROCHLORIDE CAPSULES [Concomitant]
     Indication: Vomiting
     Route: 048
     Dates: start: 20210121, end: 20210122
  44. PALONOSETRON HYDROCHLORIDE CAPSULES [Concomitant]
     Indication: Nausea
     Route: 048
     Dates: start: 20210121, end: 20210122
  45. PALONOSETRON HYDROCHLORIDE CAPSULES [Concomitant]
     Indication: Vomiting
     Route: 048
     Dates: start: 20210120, end: 20210120
  46. PALONOSETRON HYDROCHLORIDE CAPSULES [Concomitant]
     Indication: Nausea
     Route: 048
     Dates: start: 20210120, end: 20210120
  47. CHAIHU INJECTION [Concomitant]
     Indication: Pyrexia
     Dosage: 4.0ML ONCE/SINGLE ADMINISTRATION
     Route: 030
     Dates: start: 20210126, end: 20210126
  48. COMPOUND CALCIUM GLUCONATE ORAL SOLUTION [Concomitant]
     Indication: Hypocalcaemia
     Route: 048
     Dates: start: 20210128, end: 20210210
  49. CALCIUM GLUCONATE [Concomitant]
     Active Substance: CALCIUM GLUCONATE
     Indication: Hypocalcaemia
     Route: 042
     Dates: start: 20210128, end: 20210201

REACTIONS (2)
  - Urinary tract infection [Recovered/Resolved]
  - Myelosuppression [Recovered/Resolved]

NARRATIVE: CASE EVENT DATE: 20210128
